FAERS Safety Report 19938081 (Version 1)
Quarter: 2021Q4

REPORT INFORMATION
  Report Type: Other
  Country: US (occurrence: US)
  Receive Date: 20211011
  Receipt Date: 20211011
  Transmission Date: 20220303
  Serious: No
  Sender: FDA-Public Use
  Company Number: US-ROCHE-2725768

PATIENT
  Age: 40 Year
  Sex: Female

DRUGS (8)
  1. VEMURAFENIB [Suspect]
     Active Substance: VEMURAFENIB
     Indication: Colorectal cancer metastatic
     Route: 065
  2. CAPECITABINE [Suspect]
     Active Substance: CAPECITABINE
     Indication: Colorectal cancer
     Route: 065
  3. IRINOTECAN [Suspect]
     Active Substance: IRINOTECAN
     Indication: Colorectal cancer metastatic
     Route: 065
  4. CETUXIMAB [Suspect]
     Active Substance: CETUXIMAB
     Indication: Colorectal cancer metastatic
     Route: 065
  5. OXALIPLATIN [Concomitant]
     Active Substance: OXALIPLATIN
     Indication: Colorectal cancer
  6. LEUCOVORIN [Concomitant]
     Active Substance: LEUCOVORIN
  7. FLUOROURACIL [Concomitant]
     Active Substance: FLUOROURACIL
  8. COBIMETINIB [Concomitant]
     Active Substance: COBIMETINIB
     Indication: Colorectal cancer metastatic
     Route: 065

REACTIONS (2)
  - Drug resistance [Unknown]
  - Drug intolerance [Unknown]
